FAERS Safety Report 8398038-5 (Version None)
Quarter: 2012Q2

REPORT INFORMATION
  Report Type: 
  Country: None (occurrence: None)
  Receive Date: 20120531
  Receipt Date: 20120523
  Transmission Date: 20120825
  Serious: Yes (Other)
  Sender: FDA-Public Use
  Company Number: TR-ASTELLAS-2012EU003844

PATIENT
  Weight: 2.28 kg

DRUGS (1)
  1. TACROLIMUS [Suspect]
     Indication: FOETAL EXPOSURE DURING PREGNANCY
     Dosage: UNK MG, UNKNOWN/D
     Route: 064

REACTIONS (2)
  - PREMATURE BABY [None]
  - LOW BIRTH WEIGHT BABY [None]
